FAERS Safety Report 16386962 (Version 1)
Quarter: 2019Q2

REPORT INFORMATION
  Report Type: Spontaneous
  Country: BE (occurrence: BE)
  Receive Date: 20190604
  Receipt Date: 20190604
  Transmission Date: 20190711
  Serious: Yes (Other)
  Sender: FDA-Public Use
  Company Number: BE-TEVA-2019-BE-1058044

PATIENT
  Age: 8 Year
  Weight: 28 kg

DRUGS (1)
  1. DESLORATADINE TEVA 0,5 MG/ML [Suspect]
     Active Substance: DESLORATADINE
     Route: 048

REACTIONS (3)
  - Tachypnoea [Unknown]
  - Headache [Unknown]
  - Tremor [Unknown]
